FAERS Safety Report 6814547-1 (Version None)
Quarter: 2010Q3

REPORT INFORMATION
  Report Type: 
  Country: None (occurrence: None)
  Receive Date: 20100702
  Receipt Date: 20100623
  Transmission Date: 20110219
  Serious: Yes (Other)
  Sender: FDA-Public Use
  Company Number: AU-JNJFOC-20100607696

PATIENT
  Age: 53 Year
  Sex: Female

DRUGS (1)
  1. TOPAMAX [Suspect]
     Indication: PRODUCT USED FOR UNKNOWN INDICATION
     Route: 048

REACTIONS (14)
  - ABDOMINAL PAIN [None]
  - CONTUSION [None]
  - DIARRHOEA [None]
  - DRY MOUTH [None]
  - EATING DISORDER SYMPTOM [None]
  - ERUCTATION [None]
  - FOOD POISONING [None]
  - FRUSTRATION [None]
  - LACRIMATION INCREASED [None]
  - PAROSMIA [None]
  - RENAL PAIN [None]
  - SUICIDAL IDEATION [None]
  - THIRST [None]
  - WEIGHT DECREASED [None]
